FAERS Safety Report 16607142 (Version 2)
Quarter: 2019Q3

REPORT INFORMATION
  Report Type: Spontaneous
  Country: US (occurrence: US)
  Receive Date: 20190722
  Receipt Date: 20190816
  Transmission Date: 20191004
  Serious: No
  Sender: FDA-Public Use
  Company Number: US-ASTRAZENECA-2019SE99616

PATIENT
  Age: 28665 Day
  Sex: Male
  Weight: 79.4 kg

DRUGS (1)
  1. BYDUREON [Suspect]
     Active Substance: EXENATIDE
     Indication: TYPE 2 DIABETES MELLITUS
     Route: 058
     Dates: start: 2019

REACTIONS (4)
  - Needle issue [Unknown]
  - Incorrect dose administered by device [Unknown]
  - Blood glucose abnormal [Unknown]
  - Device leakage [Unknown]

NARRATIVE: CASE EVENT DATE: 20190707
